FAERS Safety Report 5304949-7 (Version None)
Quarter: 2007Q2

REPORT INFORMATION
  Report Type: 
  Country: None (occurrence: None)
  Receive Date: 20070423
  Receipt Date: 20070412
  Transmission Date: 20071010
  Serious: Yes (Other)
  Sender: FDA-Public Use
  Company Number: GB-GENENTECH-239925

PATIENT
  Age: 3 Year
  Sex: Female

DRUGS (4)
  1. NUTROPIN [Suspect]
     Indication: BODY HEIGHT BELOW NORMAL
     Dosage: 0.23 MG/KG, 1/WEEK
  2. NUTROPIN [Suspect]
     Dosage: 0.3 MG/KG, 1/WEEK
  3. NUTROPIN [Suspect]
     Dosage: 0.47 MG/KG, 1/WEEK
  4. NUTROPIN [Suspect]
     Dosage: 0.17 MG/KG, 1/WEEK

REACTIONS (2)
  - MACULAR OEDEMA [None]
  - RETINOPATHY [None]
